FAERS Safety Report 25080254 (Version 2)
Quarter: 2025Q2

REPORT INFORMATION
  Report Type: Report from Study
  Country: ES (occurrence: ES)
  Receive Date: 20250314
  Receipt Date: 20250514
  Transmission Date: 20250716
  Serious: Yes (Hospitalization)
  Sender: ABBVIE
  Company Number: ES-ABBVIE-6171513

PATIENT
  Age: 42 Year
  Sex: Male

DRUGS (10)
  1. HUMIRA [Suspect]
     Active Substance: ADALIMUMAB
     Indication: Colitis ulcerative
     Route: 058
     Dates: start: 20220510, end: 20220510
  2. HUMIRA [Suspect]
     Active Substance: ADALIMUMAB
     Route: 058
     Dates: start: 20220524, end: 20220524
  3. HUMIRA [Suspect]
     Active Substance: ADALIMUMAB
     Route: 058
     Dates: start: 20220607, end: 202404
  4. HYRIMOZ [Concomitant]
     Active Substance: ADALIMUMAB-ADAZ
     Indication: Product used for unknown indication
     Route: 058
     Dates: start: 20220515, end: 20240425
  5. OMEPRAZOLE [Concomitant]
     Active Substance: OMEPRAZOLE
     Indication: Dyspepsia
     Route: 048
     Dates: start: 20220315
  6. ACETAMINOPHEN [Concomitant]
     Active Substance: ACETAMINOPHEN
     Indication: Pain management
     Route: 048
     Dates: start: 20220315
  7. PIPERACILLIN [Concomitant]
     Active Substance: PIPERACILLIN
     Indication: Antibiotic prophylaxis
     Dosage: ROA -INTRAVENOUS DRIP
     Dates: start: 20240419
  8. USTEKINUMAB [Concomitant]
     Active Substance: USTEKINUMAB
     Indication: Product used for unknown indication
     Route: 058
     Dates: start: 20240426
  9. MESALAMINE [Concomitant]
     Active Substance: MESALAMINE
     Indication: Product used for unknown indication
     Route: 048
     Dates: start: 20130222
  10. AZATHIOPRINE [Suspect]
     Active Substance: AZATHIOPRINE
     Indication: Stenosis
     Route: 048
     Dates: start: 20130410, end: 20190702

REACTIONS (1)
  - Rectal abscess [Not Recovered/Not Resolved]

NARRATIVE: CASE EVENT DATE: 20240419
